FAERS Safety Report 7471966-0 (Version None)
Quarter: 2011Q2

REPORT INFORMATION
  Report Type: 
  Country: None (occurrence: None)
  Receive Date: 20110511
  Receipt Date: 20100816
  Transmission Date: 20111010
  Serious: No
  Sender: FDA-Public Use
  Company Number: A0877515A

PATIENT
  Sex: Female

DRUGS (1)
  1. TYKERB [Suspect]
     Dosage: 1000MG PER DAY
     Route: 048
     Dates: start: 20091001

REACTIONS (6)
  - ERYTHEMA [None]
  - FATIGUE [None]
  - ACNE [None]
  - DYSPNOEA [None]
  - ABDOMINAL PAIN UPPER [None]
  - INSOMNIA [None]
